FAERS Safety Report 18678591 (Version 2)
Quarter: 2021Q1

REPORT INFORMATION
  Report Type: Spontaneous
  Country: CN (occurrence: CN)
  Receive Date: 20201230
  Receipt Date: 20210107
  Transmission Date: 20210419
  Serious: Yes (Other)
  Sender: FDA-Public Use
  Company Number: CN-ASTRAZENECA-2020SF72467

PATIENT
  Age: 80 Year
  Sex: Female

DRUGS (1)
  1. NEXIUM [Suspect]
     Active Substance: ESOMEPRAZOLE MAGNESIUM
     Indication: GASTROOESOPHAGEAL REFLUX DISEASE
     Dosage: HALF A TABLET IN THE MORNING AND HALF A TABLET IN THE EVENING
     Route: 048

REACTIONS (8)
  - Mental disorder [Recovered/Resolved]
  - Anuria [Recovered/Resolved]
  - Product use issue [Recovered/Resolved]
  - Wrong technique in product usage process [Recovered/Resolved]
  - Abdominal pain upper [Recovered/Resolved]
  - Product use complaint [Recovered/Resolved]
  - Back pain [Recovered/Resolved]
  - Oropharyngeal discomfort [Recovered/Resolved]
